FAERS Safety Report 15779065 (Version 1)
Quarter: 2019Q1

REPORT INFORMATION
  Report Type: Spontaneous
  Country: TR (occurrence: TR)
  Receive Date: 20190101
  Receipt Date: 20190101
  Transmission Date: 20190417
  Serious: Yes (Other)
  Sender: FDA-Public Use
  Company Number: PHHY2018TR190099

PATIENT
  Age: 55 Year
  Sex: Female

DRUGS (3)
  1. SANDIMMUN NEORAL [Suspect]
     Active Substance: CYCLOSPORINE
     Indication: PROTEIN TOTAL ABNORMAL
     Dosage: 100 MG, BID
     Route: 048
  2. VERXANT [Suspect]
     Active Substance: SECUKINUMAB
     Dosage: UNK UNK, QMO
     Route: 065
     Dates: start: 201810
  3. VERXANT [Suspect]
     Active Substance: SECUKINUMAB
     Indication: PSORIASIS
     Dosage: UNK UNK, QMO
     Route: 065
     Dates: start: 201804

REACTIONS (10)
  - Mental disorder [Unknown]
  - Dysuria [Unknown]
  - Abdominal distension [Unknown]
  - Pyrexia [Unknown]
  - Influenza [Unknown]
  - Blood test abnormal [Unknown]
  - Blood pressure increased [Unknown]
  - Heart rate decreased [Unknown]
  - Schizophrenia [Unknown]
  - Inappropriate schedule of product administration [Unknown]
